FAERS Safety Report 8223910-6 (Version None)
Quarter: 2012Q1

REPORT INFORMATION
  Report Type: 
  Country: None (occurrence: None)
  Receive Date: 20120307
  Receipt Date: 20110616
  Transmission Date: 20120608
  Serious: No
  Sender: FDA-Public Use
  Company Number: PHHY2011US54660

PATIENT
  Age: 62 Year
  Sex: Male

DRUGS (1)
  1. AFINITOR [Suspect]

REACTIONS (5)
  - COUGH [None]
  - STOMATITIS [None]
  - PARAESTHESIA [None]
  - FATIGUE [None]
  - WHITE BLOOD CELL COUNT DECREASED [None]
